FAERS Safety Report 16995143 (Version 2)
Quarter: 2019Q4

REPORT INFORMATION
  Report Type: Spontaneous
  Country: US (occurrence: US)
  Receive Date: 20191105
  Receipt Date: 20191220
  Transmission Date: 20200122
  Serious: No
  Sender: FDA-Public Use
  Company Number: US-VERTEX PHARMACEUTICALS-2019-010665

PATIENT
  Age: 6 Year
  Sex: Male
  Weight: 22 kg

DRUGS (7)
  1. SYMDEKO [Suspect]
     Active Substance: IVACAFTOR\TEZACAFTOR
     Indication: CYSTIC FIBROSIS
     Dosage: TEZACAFTOR 50 MG, IVACAFTOR 75 MG QAM; IVACAFTOR 75 MG QPM
     Route: 048
     Dates: start: 201909
  2. PULMOZYME [Concomitant]
     Active Substance: DORNASE ALFA
  3. ALBUTEROL SULFATE. [Concomitant]
     Active Substance: ALBUTEROL SULFATE
  4. AZITHROMYCIN ANHYDROUS. [Concomitant]
     Active Substance: AZITHROMYCIN ANHYDROUS
  5. MIRALAX [Concomitant]
     Active Substance: POLYETHYLENE GLYCOL 3350
     Dosage: 17 GRAM
  6. CREON [Concomitant]
     Active Substance: PANCRELIPASE AMYLASE\PANCRELIPASE LIPASE\PANCRELIPASE PROTEASE
  7. NEXIUM I.V. [Concomitant]
     Active Substance: ESOMEPRAZOLE SODIUM

REACTIONS (1)
  - Sinusitis [Recovered/Resolved]

NARRATIVE: CASE EVENT DATE: 201910
